FAERS Safety Report 7743031-6 (Version None)
Quarter: 2011Q3

REPORT INFORMATION
  Report Type: 
  Country: None (occurrence: None)
  Receive Date: 20110912
  Receipt Date: 20110906
  Transmission Date: 20111222
  Serious: Yes (Other)
  Sender: FDA-Public Use
  Company Number: US-ROCHE-747945

PATIENT

DRUGS (2)
  1. AVASTIN [Suspect]
     Route: 065
  2. TAXOTERE [Suspect]
     Dosage: DRUG REPORTED AS TAXANE
     Route: 065

REACTIONS (1)
  - HEPATIC CIRRHOSIS [None]
